FAERS Safety Report 6041008-2 (Version None)
Quarter: 2009Q1

REPORT INFORMATION
  Report Type: 
  Country: None (occurrence: None)
  Receive Date: 20090116
  Receipt Date: 20080724
  Transmission Date: 20090719
  Serious: No
  Sender: FDA-Public Use
  Company Number: US-BRISTOL-MYERS SQUIBB COMPANY-14277024

PATIENT
  Age: 45 Year
  Sex: Female
  Weight: 107 kg

DRUGS (6)
  1. ABILIFY [Suspect]
     Indication: DEPRESSION
     Dates: start: 20080622
  2. LITHIUM [Concomitant]
  3. MINIPRESS [Concomitant]
  4. FOSAMAX [Concomitant]
  5. ATROVENT [Concomitant]
  6. LAMICTAL [Concomitant]

REACTIONS (2)
  - SPEECH DISORDER [None]
  - THINKING ABNORMAL [None]
